FAERS Safety Report 5328479-1 (Version None)
Quarter: 2007Q2

REPORT INFORMATION
  Report Type: 
  Country: None (occurrence: None)
  Receive Date: 20070518
  Receipt Date: 20070509
  Transmission Date: 20071010
  Serious: Yes (Other)
  Sender: FDA-Public Use
  Company Number: CA-ROCHE-493492

PATIENT
  Age: 56 Year
  Sex: Female

DRUGS (6)
  1. PEGASYS [Suspect]
     Indication: HEPATITIS C
     Route: 058
     Dates: start: 20070206, end: 20070403
  2. PEGASYS [Suspect]
     Route: 058
     Dates: start: 20070403, end: 20070414
  3. PEGASYS [Suspect]
     Dosage: FORM: VIAL.
     Route: 058
     Dates: start: 20070430, end: 20070508
  4. PEGASYS [Suspect]
     Route: 058
     Dates: start: 20070508
  5. COPEGUS [Suspect]
     Indication: HEPATITIS C
     Dosage: DOSAGE: TWO TABLETS IN THE MORNING AND TWO TABLETS IN THE EVENING.
     Route: 048
     Dates: start: 20070206, end: 20070414
  6. COPEGUS [Suspect]
     Route: 048
     Dates: start: 20070430

REACTIONS (2)
  - ANAEMIA [None]
  - CHOLECYSTITIS [None]
